FAERS Safety Report 13383364 (Version 1)
Quarter: 2017Q1

REPORT INFORMATION
  Report Type: Report from Study
  Country: DE (occurrence: DE)
  Receive Date: 20170329
  Receipt Date: 20170329
  Transmission Date: 20170429
  Serious: Yes (Other)
  Sender: FDA-Public Use
  Company Number: DE-PFIZER INC-2017128669

PATIENT
  Age: 43 Year
  Sex: Male

DRUGS (3)
  1. IRINOTECAN HCL [Suspect]
     Active Substance: IRINOTECAN HYDROCHLORIDE
     Dosage: UNK UNK, CYCLIC  (DAYS 2 AND 4 FOR FIVE SUBSEQUENT CYCLES WITH TREATMENT CYCLES OF FOUR WEEKS)
     Route: 042
  2. TRABECTEDIN [Suspect]
     Active Substance: TRABECTEDIN
     Indication: EWING^S SARCOMA
     Dosage: 1 MG/M2, CYCLIC (./24 H ON DAY 1)
     Route: 042
  3. IRINOTECAN HCL [Suspect]
     Active Substance: IRINOTECAN HYDROCHLORIDE
     Indication: EWING^S SARCOMA
     Dosage: 75 MG/M2, CYCLIC (ON DAY 2 FOR SIX CYCLES TOTAL CYCLE RECEIVED 11)
     Route: 042

REACTIONS (1)
  - Hepatotoxicity [Unknown]
